FAERS Safety Report 4604962-9 (Version None)
Quarter: 2005Q1

REPORT INFORMATION
  Report Type: 
  Country: None (occurrence: None)
  Receive Date: 20050311
  Receipt Date: 20050225
  Transmission Date: 20050727
  Serious: Yes (Other)
  Sender: FDA-Public Use
  Company Number: PHBS2005BR03002

PATIENT
  Age: 2 Year
  Sex: Male
  Weight: 14 kg

DRUGS (1)
  1. TEGRETOL [Suspect]
     Dosage: 50 ML, ONCE/SINGLE
     Route: 048
     Dates: start: 20050225, end: 20050225

REACTIONS (3)
  - ACCIDENTAL EXPOSURE [None]
  - ASTHENIA [None]
  - SOMNOLENCE [None]
